FAERS Safety Report 6687999-8 (Version None)
Quarter: 2010Q2

REPORT INFORMATION
  Report Type: 
  Country: None (occurrence: None)
  Receive Date: 20100412
  Receipt Date: 20091231
  Transmission Date: 20101027
  Serious: No
  Sender: FDA-Public Use
  Company Number: 1000011057

PATIENT
  Age: 63 Year
  Sex: Male

DRUGS (3)
  1. BYSTOLIC [Suspect]
     Indication: HYPERTENSION
     Dosage: 5 MG (5 MG, 1 IN 1 D),10MG1IN1D,15MG, 1 IN 21D12 ORAL
     Route: 048
     Dates: start: 20080101, end: 20091201
  2. BYSTOLIC [Suspect]
     Indication: HYPERTENSION
     Dosage: 5 MG (5 MG, 1 IN 1 D),10MG1IN1D,15MG, 1 IN 21D12 ORAL
     Route: 048
     Dates: start: 20091201, end: 20091201
  3. BYSTOLIC [Suspect]
     Indication: HYPERTENSION
     Dosage: 5 MG (5 MG, 1 IN 1 D),10MG1IN1D,15MG, 1 IN 21D12 ORAL
     Route: 048
     Dates: start: 20091201

REACTIONS (3)
  - HEADACHE [None]
  - HEART RATE DECREASED [None]
  - NAUSEA [None]
